FAERS Safety Report 12504337 (Version 1)
Quarter: 2016Q2

REPORT INFORMATION
  Report Type: Spontaneous
  Country: US (occurrence: US)
  Receive Date: 20160628
  Receipt Date: 20160628
  Transmission Date: 20160815
  Serious: No
  Sender: FDA-Public Use
  Company Number: PHHY2016US088114

PATIENT
  Age: 29 Year
  Sex: Female

DRUGS (1)
  1. CAMBIA [Suspect]
     Active Substance: DICLOFENAC POTASSIUM
     Indication: PAIN
     Dosage: 50 MG, UNK(DISSOLVE AS DIRECTED 1 PACKET )
     Route: 048
     Dates: start: 20160308, end: 20160601

REACTIONS (3)
  - Pruritus generalised [Unknown]
  - Rash [Unknown]
  - Off label use [Recovered/Resolved]

NARRATIVE: CASE EVENT DATE: 20160308
